FAERS Safety Report 9392880 (Version 1)
Quarter: 2013Q3

REPORT INFORMATION
  Report Type: Spontaneous
  Country: US (occurrence: US)
  Receive Date: 20130710
  Receipt Date: 20130710
  Transmission Date: 20140515
  Serious: Yes (Hospitalization)
  Sender: FDA-Public Use
  Company Number: US-PFIZER INC-2013202294

PATIENT
  Age: 39 Year
  Sex: Female
  Weight: 90.7 kg

DRUGS (2)
  1. CHANTIX [Suspect]
     Indication: SMOKING CESSATION THERAPY
     Dosage: UNK
     Dates: start: 201304, end: 2013
  2. PRISTIQ [Concomitant]
     Dosage: 50 MG, 1X/DAY

REACTIONS (1)
  - Cerebrovascular accident [Unknown]
